FAERS Safety Report 4880369-4 (Version None)
Quarter: 2006Q1

REPORT INFORMATION
  Report Type: 
  Country: None (occurrence: None)
  Receive Date: 20060111
  Receipt Date: 20060104
  Transmission Date: 20060701
  Serious: Yes (Death)
  Sender: FDA-Public Use
  Company Number: 200610046BWH

PATIENT
  Age: 71 Year
  Sex: Male
  Weight: 79.3795 kg

DRUGS (11)
  1. SORAFENIB [Suspect]
     Indication: METASTATIC RENAL CELL CARCINOMA
     Dosage: SEE IMAGE
     Route: 048
     Dates: start: 20051116, end: 20051209
  2. SORAFENIB [Suspect]
     Indication: METASTATIC RENAL CELL CARCINOMA
     Dosage: SEE IMAGE
     Route: 048
     Dates: start: 20051212, end: 20051224
  3. NORVASC [Concomitant]
  4. LIPITOR [Concomitant]
  5. FOLTX [Concomitant]
  6. ASPIRIN [Concomitant]
  7. OXYCONTIN [Concomitant]
  8. PERCOCET [Concomitant]
  9. LEVSIN [Concomitant]
  10. MEGACE [Concomitant]
  11. HOSPICE COMFORT KIT [Concomitant]

REACTIONS (2)
  - DISEASE PROGRESSION [None]
  - RENAL CELL CARCINOMA STAGE UNSPECIFIED [None]
